FAERS Safety Report 6638738-8 (Version None)
Quarter: 2010Q1

REPORT INFORMATION
  Report Type: 
  Country: None (occurrence: None)
  Receive Date: 20100316
  Receipt Date: 20100316
  Transmission Date: 20100710
  Serious: Yes (Other)
  Sender: FDA-Public Use
  Company Number: None

PATIENT
  Sex: Male
  Weight: 90.7194 kg

DRUGS (2)
  1. RIBAPAK 1200MG DOSEPAK DSM PHARMACEUTICALS, [Suspect]
     Indication: HEPATITIS C
     Dosage: 600MG TABLET TWICE DAILY PO
     Route: 048
     Dates: start: 20090821, end: 20091231
  2. PEGASYS [Concomitant]

REACTIONS (1)
  - PREGNANCY OF PARTNER [None]
